FAERS Safety Report 15853629 (Version 1)
Quarter: 2019Q1

REPORT INFORMATION
  Report Type: Spontaneous
  Country: US (occurrence: US)
  Receive Date: 20190122
  Receipt Date: 20190122
  Transmission Date: 20190417
  Serious: No
  Sender: FDA-Public Use
  Company Number: US-LEXICON PHARMACEUTICALS, INC-19-1606-00002

PATIENT
  Age: 85 Year
  Sex: Male

DRUGS (11)
  1. ATORVASTATIN [Concomitant]
     Active Substance: ATORVASTATIN
  2. VALSARTAN. [Concomitant]
     Active Substance: VALSARTAN
  3. DOXAZOSIN [Concomitant]
     Active Substance: DOXAZOSIN\DOXAZOSIN MESYLATE
  4. LOSARTAN POTASSIUM HCTZ [Concomitant]
  5. FINASTERIDE. [Concomitant]
     Active Substance: FINASTERIDE
  6. UROCIT [Concomitant]
  7. HYDROCODONE-ACETAMINOPHEN [Concomitant]
     Active Substance: ACETAMINOPHEN\HYDROCODONE
  8. TAMULOSIN [Concomitant]
     Active Substance: TAMSULOSIN
  9. FUROSEMIDE. [Concomitant]
     Active Substance: FUROSEMIDE
  10. TELOTRISTAT ETHYL [Suspect]
     Active Substance: TELOTRISTAT ETHYL
     Indication: CARCINOID SYNDROME
     Route: 048
     Dates: start: 20181128
  11. ZOFRAN [Concomitant]
     Active Substance: ONDANSETRON HYDROCHLORIDE

REACTIONS (1)
  - Constipation [Unknown]
